FAERS Safety Report 4686619-1 (Version None)
Quarter: 2005Q2

REPORT INFORMATION
  Report Type: 
  Country: None (occurrence: None)
  Receive Date: 20050609
  Receipt Date: 20050405
  Transmission Date: 20051028
  Serious: Yes (Death, Hospitalization)
  Sender: FDA-Public Use
  Company Number: IT-BRISTOL-MYERS SQUIBB COMPANY-12922118

PATIENT
  Sex: Male
  Weight: 58 kg

DRUGS (15)
  1. CARBOPLATIN [Suspect]
     Indication: MESOTHELIOMA
     Route: 042
     Dates: start: 20050218
  2. ALIMTA [Suspect]
     Indication: MESOTHELIOMA
     Route: 042
     Dates: start: 20050218
  3. VITAMIN B-12 [Concomitant]
     Dates: start: 20050214, end: 20050214
  4. FOLIC ACID [Concomitant]
     Dates: start: 20050204, end: 20050405
  5. DEXAMETHASONE [Concomitant]
     Dates: start: 20050217, end: 20050323
  6. FUROSEMIDE [Concomitant]
     Indication: HYPERTENSION
     Dates: start: 20050214
  7. AMLODIPINE [Concomitant]
     Indication: HYPERTENSION
     Dates: start: 20050214, end: 20050405
  8. LANSOPRAZOLE [Concomitant]
     Indication: PROPHYLAXIS
     Dates: start: 20050214
  9. VASTAREL [Concomitant]
     Indication: HYPERTENSION
     Dates: start: 20050214, end: 20050405
  10. ENALAPRIL MALEATE [Concomitant]
     Indication: HYPERTENSION
     Dates: start: 20050214, end: 20050405
  11. ALLOPURINOL [Concomitant]
     Indication: GOUT
     Dates: start: 20050214, end: 20050403
  12. CARDIOASPIRIN [Concomitant]
     Dates: start: 20050221
  13. ACTRAPID [Concomitant]
     Indication: DIABETES MELLITUS
     Dates: start: 20040101, end: 20050405
  14. ACTRAPHANE [Concomitant]
     Indication: DIABETES MELLITUS
     Dates: start: 20040101, end: 20050405
  15. SINVACOR [Concomitant]
     Indication: DYSLIPIDAEMIA
     Dates: start: 20050214

REACTIONS (12)
  - ANAEMIA [None]
  - ASTHENIA [None]
  - BRONCHITIS ACUTE [None]
  - BRONCHITIS CHRONIC [None]
  - DEATH [None]
  - FEBRILE NEUTROPENIA [None]
  - LEUKOPENIA [None]
  - MUCOSAL INFLAMMATION [None]
  - NEUTROPENIA [None]
  - PYREXIA [None]
  - SUPERINFECTION [None]
  - THROMBOCYTOPENIA [None]
